FAERS Safety Report 5792088-0 (Version None)
Quarter: 2008Q2

REPORT INFORMATION
  Report Type: 
  Country: None (occurrence: None)
  Receive Date: 20080626
  Receipt Date: 20080616
  Transmission Date: 20081010
  Serious: Yes (Other)
  Sender: FDA-Public Use
  Company Number: CA-ELI_LILLY_AND_COMPANY-CA200806003698

PATIENT
  Age: 31 Year
  Sex: Male

DRUGS (8)
  1. CYMBALTA [Suspect]
     Indication: PAIN
     Dosage: 30 MG, UNK
     Dates: start: 20080501
  2. CYMBALTA [Suspect]
     Dosage: 60 MG, UNK
     Dates: start: 20080101
  3. NEXIUM [Concomitant]
  4. REMERON [Concomitant]
  5. ZOPICLONE [Concomitant]
  6. CLONAZEPAM [Concomitant]
  7. ARTHROTEC [Concomitant]
  8. METHADONE HCL [Concomitant]

REACTIONS (5)
  - DYSPNOEA [None]
  - GAIT DISTURBANCE [None]
  - JOINT SWELLING [None]
  - ROAD TRAFFIC ACCIDENT [None]
  - WEIGHT INCREASED [None]
